FAERS Safety Report 16902572 (Version 1)
Quarter: 2019Q4

REPORT INFORMATION
  Report Type: Spontaneous
  Country: GB (occurrence: GB)
  Receive Date: 20191010
  Receipt Date: 20191010
  Transmission Date: 20200122
  Serious: Yes (Hospitalization, Other)
  Sender: FDA-Public Use
  Company Number: GB-ALKEM LABORATORIES LIMITED-GB-ALKEM-2019-08574

PATIENT
  Age: 37 Year
  Sex: Male

DRUGS (6)
  1. LITHIUM. [Suspect]
     Active Substance: LITHIUM
     Indication: PRODUCT USED FOR UNKNOWN INDICATION
     Dosage: UNK
     Route: 065
  2. SODIUM VALPROATE [Concomitant]
     Active Substance: VALPROATE SODIUM
     Indication: PRODUCT USED FOR UNKNOWN INDICATION
     Dosage: UNKNOWN
     Route: 065
  3. CLOZARIL [Suspect]
     Active Substance: CLOZAPINE
     Dosage: UNKNOWN
     Route: 048
     Dates: end: 20190212
  4. CLOZARIL [Suspect]
     Active Substance: CLOZAPINE
     Dosage: UNKNOWN
     Route: 048
     Dates: start: 20190410, end: 201905
  5. QUETIAPINE FUMARATE. [Suspect]
     Active Substance: QUETIAPINE FUMARATE
     Indication: SCHIZOPHRENIA
     Dosage: 700 MILLIGRAM
     Route: 065
  6. CLOZARIL [Suspect]
     Active Substance: CLOZAPINE
     Indication: SCHIZOPHRENIA
     Dosage: UNKNOWN
     Route: 048
     Dates: start: 20161212, end: 20180524

REACTIONS (9)
  - Nasopharyngitis [Unknown]
  - Sepsis [Unknown]
  - Neutrophil count increased [Not Recovered/Not Resolved]
  - Lower respiratory tract infection [Unknown]
  - White blood cell count decreased [Recovered/Resolved]
  - Leukocytosis [Recovering/Resolving]
  - Platelet count increased [Recovered/Resolved]
  - Mental impairment [Unknown]
  - Agranulocytosis [Recovered/Resolved]

NARRATIVE: CASE EVENT DATE: 20180412
